FAERS Safety Report 21726047 (Version 1)
Quarter: 2022Q4

REPORT INFORMATION
  Report Type: Spontaneous
  Country: CN (occurrence: CN)
  Receive Date: 20221214
  Receipt Date: 20221214
  Transmission Date: 20230112
  Serious: Yes (Hospitalization)
  Sender: FDA-Public Use
  Company Number: CN-002147023-NVSC2022CN286473

PATIENT
  Age: 75 Year
  Sex: Female
  Weight: 45 kg

DRUGS (2)
  1. SACUBITRIL\VALSARTAN [Suspect]
     Active Substance: SACUBITRIL\VALSARTAN
     Indication: Cardiac failure
     Dosage: 50 MG, BID (Q 12H)
     Route: 048
     Dates: start: 20221018, end: 20221027
  2. SACUBITRIL\VALSARTAN [Suspect]
     Active Substance: SACUBITRIL\VALSARTAN
     Dosage: 25 MG, BID
     Route: 048

REACTIONS (6)
  - Hypotension [Recovering/Resolving]
  - Atrial fibrillation [Unknown]
  - ECG signs of myocardial ischaemia [Unknown]
  - Vertigo [Unknown]
  - Myocardial hypoperfusion [Unknown]
  - Prescribed underdose [Unknown]

NARRATIVE: CASE EVENT DATE: 20221027
